FAERS Safety Report 20205772 (Version 1)
Quarter: 2021Q4

REPORT INFORMATION
  Report Type: Spontaneous
  Country: KR (occurrence: KR)
  Receive Date: 20211220
  Receipt Date: 20211220
  Transmission Date: 20220303
  Serious: Yes (Other)
  Sender: FDA-Public Use
  Company Number: KR-STRIDES ARCOLAB LIMITED-2021SP031199

PATIENT
  Age: 18 Year
  Sex: Male

DRUGS (3)
  1. PREDNISOLONE [Suspect]
     Active Substance: PREDNISOLONE
     Indication: Deafness neurosensory
     Dosage: 60 MILLIGRAM PER DAY
     Route: 048
  2. PREDNISOLONE [Suspect]
     Active Substance: PREDNISOLONE
     Dosage: UNK, (TAPERED DOSE FOR THE NEXT FIVE DAYS   )
     Route: 048
  3. DEXAMETHASONE [Suspect]
     Active Substance: DEXAMETHASONE
     Indication: Deafness neurosensory
     Dosage: 5 MILLIGRAM, CYCLICAL (STEROID INJECTION; 5 MG EVERY THIRD DAY FOR FIVE CYCLES)

REACTIONS (3)
  - Deafness neurosensory [Unknown]
  - Disease progression [Unknown]
  - Off label use [Unknown]
